FAERS Safety Report 18582320 (Version 1)
Quarter: 2020Q4

REPORT INFORMATION
  Report Type: Spontaneous
  Country: US (occurrence: US)
  Receive Date: 20201204
  Receipt Date: 20201204
  Transmission Date: 20210114
  Serious: Yes (Disabling)
  Sender: FDA-Public Use
  Company Number: None

PATIENT
  Age: 56 Year
  Sex: Female
  Weight: 57.15 kg

DRUGS (3)
  1. FAMOTIDINE. [Concomitant]
     Active Substance: FAMOTIDINE
  2. GLATIRAMER ACETATE 40 MG/ML SINGLE DOSE PRE-FILLED SYRINGES [Suspect]
     Active Substance: GLATIRAMER ACETATE
     Indication: MULTIPLE SCLEROSIS
     Dosage: ?          QUANTITY:12 INJECTION(S);OTHER FREQUENCY:THREE TIME A WEEK;?
     Route: 058
     Dates: start: 20200427, end: 20200827
  3. LEVOTHRYROXINE [Concomitant]

REACTIONS (6)
  - Drug ineffective [None]
  - Device issue [None]
  - Needle issue [None]
  - Injection site swelling [None]
  - Injection site discolouration [None]
  - Multiple sclerosis [None]

NARRATIVE: CASE EVENT DATE: 20200601
